FAERS Safety Report 21012490 (Version 1)
Quarter: 2022Q2

REPORT INFORMATION
  Report Type: Spontaneous
  Country: JP (occurrence: JP)
  Receive Date: 20220627
  Receipt Date: 20220627
  Transmission Date: 20220721
  Serious: Yes (Other)
  Sender: FDA-Public Use
  Company Number: JP-LUNDBECK-DKLU3049355

PATIENT

DRUGS (1)
  1. ESCITALOPRAM OXALATE [Suspect]
     Active Substance: ESCITALOPRAM OXALATE
     Indication: Maternal exposure during breast feeding
     Dosage: 10 MG, QD, TRASNMAMMARY

REACTIONS (2)
  - Kawasaki^s disease [Unknown]
  - Exposure via breast milk [Unknown]
